FAERS Safety Report 19318207 (Version 1)
Quarter: 2021Q2

REPORT INFORMATION
  Report Type: Report from Study
  Country: US (occurrence: US)
  Receive Date: 20210527
  Receipt Date: 20210527
  Transmission Date: 20210717
  Serious: Yes (Death, Other)
  Sender: FDA-Public Use
  Company Number: US-EVEREST MEDICINES II (HK) LIMITED-2021-0532732

PATIENT
  Age: 60 Year
  Sex: Female

DRUGS (2)
  1. SACITUZUMAB GOVITECAN. [Suspect]
     Active Substance: SACITUZUMAB GOVITECAN
     Indication: CERVIX CARCINOMA
  2. SACITUZUMAB GOVITECAN. [Suspect]
     Active Substance: SACITUZUMAB GOVITECAN
     Indication: BREAST CANCER
     Dosage: 472 MG DAY 1 AND DAY 8 OF A 21 DAY CYCLE
     Route: 042
     Dates: start: 2020, end: 20210122

REACTIONS (1)
  - Death [Fatal]

NARRATIVE: CASE EVENT DATE: 202103
